FAERS Safety Report 25664908 (Version 3)
Quarter: 2025Q3

REPORT INFORMATION
  Report Type: Spontaneous
  Country: ID (occurrence: MY)
  Receive Date: 20250811
  Receipt Date: 20250821
  Transmission Date: 20251020
  Serious: Yes (Other)
  Sender: PFIZER
  Company Number: ID-PFIZER INC-PV202500096034

PATIENT
  Age: 28 Year

DRUGS (1)
  1. LORLATINIB [Suspect]
     Active Substance: LORLATINIB

REACTIONS (2)
  - Renal impairment [Recovered/Resolved]
  - Blood creatinine increased [Recovered/Resolved]
